FAERS Safety Report 18856085 (Version 1)
Quarter: 2021Q1

REPORT INFORMATION
  Report Type: Not Available
  Country: US (occurrence: US)
  Receive Date: 20210206
  Receipt Date: 20210206
  Transmission Date: 20210420
  Serious: No
  Sender: FDA-Public Use
  Company Number: US-NEUROCRINE BIOSCIENCES INC.-2021NBI00345

PATIENT
  Age: 48 Year
  Sex: Male

DRUGS (4)
  1. INGREZZA [Suspect]
     Active Substance: VALBENAZINE
     Indication: TARDIVE DYSKINESIA
     Route: 048
     Dates: start: 20210114
  2. RISPERDAL [Concomitant]
     Active Substance: RISPERIDONE
     Route: 048
  3. VALIUM [Concomitant]
     Active Substance: DIAZEPAM
     Route: 048
  4. WELLBUTRIN [Concomitant]
     Active Substance: BUPROPION HYDROCHLORIDE
     Route: 048

REACTIONS (5)
  - Somnolence [Unknown]
  - Balance disorder [Unknown]
  - Arthralgia [Unknown]
  - Headache [Unknown]
  - Inappropriate schedule of product administration [Unknown]

NARRATIVE: CASE EVENT DATE: 202101
